FAERS Safety Report 9542719 (Version 1)
Quarter: 2013Q3

REPORT INFORMATION
  Report Type: Spontaneous
  Country: US (occurrence: US)
  Receive Date: 20130923
  Receipt Date: 20130923
  Transmission Date: 20140515
  Serious: No
  Sender: FDA-Public Use
  Company Number: US-PFIZER INC-2013270286

PATIENT
  Sex: 0

DRUGS (6)
  1. METHOTREXATE SODIUM [Suspect]
     Dosage: UNK
  2. HYDROXYCHLOROQUINE [Suspect]
     Dosage: UNK
  3. ORENCIA [Suspect]
     Dosage: UNK
  4. ACTEMRA [Suspect]
     Dosage: UNK
  5. REMICADE [Suspect]
     Dosage: UNK
  6. ARAVA [Suspect]
     Dosage: UNK

REACTIONS (1)
  - Hypersensitivity [Unknown]
